FAERS Safety Report 16244663 (Version 1)
Quarter: 2019Q2

REPORT INFORMATION
  Report Type: Spontaneous
  Country: US (occurrence: US)
  Receive Date: 20190426
  Receipt Date: 20190426
  Transmission Date: 20190711
  Serious: Yes (Hospitalization)
  Sender: FDA-Public Use
  Company Number: US-SAOL THERAPEUTICS-2019SAO00149

PATIENT
  Age: 26 Year
  Sex: Female
  Weight: 65.76 kg

DRUGS (2)
  1. LIORESAL [Suspect]
     Active Substance: BACLOFEN
     Indication: HEAD INJURY
     Dosage: UNK
     Route: 037
  2. LIORESAL [Suspect]
     Active Substance: BACLOFEN
     Indication: MUSCLE SPASTICITY
     Dosage: 400 ?G, \DAY
     Route: 037

REACTIONS (2)
  - Neurosurgery [Unknown]
  - Device failure [Not Recovered/Not Resolved]

NARRATIVE: CASE EVENT DATE: 20190226
